FAERS Safety Report 10463072 (Version 1)
Quarter: 2014Q3

REPORT INFORMATION
  Report Type: Spontaneous
  Country: CO (occurrence: CO)
  Receive Date: 20140919
  Receipt Date: 20140919
  Transmission Date: 20150326
  Serious: Yes (Other)
  Sender: FDA-Public Use
  Company Number: CO-PFIZER INC-2014257177

PATIENT
  Age: 34 Year
  Sex: Female

DRUGS (1)
  1. SAYANA [Suspect]
     Active Substance: MEDROXYPROGESTERONE
     Indication: CONTRACEPTION
     Dosage: UNK
     Dates: start: 201203, end: 201404

REACTIONS (2)
  - Hypertension [Unknown]
  - Weight increased [Unknown]

NARRATIVE: CASE EVENT DATE: 201404
